FAERS Safety Report 6550347-8 (Version None)
Quarter: 2010Q1

REPORT INFORMATION
  Report Type: 
  Country: None (occurrence: None)
  Receive Date: 20100125
  Receipt Date: 20100113
  Transmission Date: 20100710
  Serious: Yes (Death)
  Sender: FDA-Public Use
  Company Number: DE-NOVOPROD-300789

PATIENT
  Age: 20 Year
  Sex: Male

DRUGS (1)
  1. NOVOSEVEN [Suspect]
     Indication: INJURY
     Dosage: 9 MG, SINGLE
     Dates: start: 20091106, end: 20091106

REACTIONS (1)
  - PULMONARY EMBOLISM [None]
